FAERS Safety Report 25428408 (Version 1)
Quarter: 2025Q2

REPORT INFORMATION
  Report Type: Spontaneous
  Country: US (occurrence: US)
  Receive Date: 20250612
  Receipt Date: 20250612
  Transmission Date: 20250717
  Serious: No
  Sender: SANOFI AVENTIS
  Company Number: US-SA-2025SA166435

PATIENT
  Age: 15 Year
  Sex: Male
  Weight: 56.67 kg

DRUGS (3)
  1. DUPIXENT [Suspect]
     Active Substance: DUPILUMAB
     Indication: Asthma
     Dosage: 300 MG, QOW
     Route: 058
  2. IRON [Concomitant]
     Active Substance: IRON
  3. VITAMIN D2 [Concomitant]
     Active Substance: ERGOCALCIFEROL

REACTIONS (2)
  - Injection site mass [Unknown]
  - Conjunctivitis [Recovered/Resolved]

NARRATIVE: CASE EVENT DATE: 20240401
